FAERS Safety Report 5095904-3 (Version None)
Quarter: 2006Q3

REPORT INFORMATION
  Report Type: 
  Country: None (occurrence: None)
  Receive Date: 20060727
  Receipt Date: 20060407
  Transmission Date: 20061208
  Serious: No
  Sender: FDA-Public Use
  Company Number: FACT0600207

PATIENT
  Age: 27 Year
  Sex: Female

DRUGS (6)
  1. FACTIVE [Suspect]
     Indication: RESPIRATORY TRACT INFECTION BACTERIAL
     Dosage: 320 MG, QD, ORAL
     Route: 048
     Dates: start: 20060214, end: 20060221
  2. LEVAQUIN [Suspect]
     Indication: PNEUMONIA
     Dates: start: 20060201, end: 20060201
  3. PULMICORT [Concomitant]
  4. ALBUTEROL [Concomitant]
  5. MUCINEX [Concomitant]
  6. AVIANE (ETHINYLESTRADIOL, LEVONORGESTREL) [Concomitant]

REACTIONS (1)
  - RASH GENERALISED [None]
